FAERS Safety Report 24696739 (Version 2)
Quarter: 2025Q2

REPORT INFORMATION
  Report Type: Report from Study
  Country: SA (occurrence: SA)
  Receive Date: 20241204
  Receipt Date: 20250521
  Transmission Date: 20250716
  Serious: Yes (Hospitalization, Other)
  Sender: GLAXOSMITHKLINE
  Company Number: SA-GSK-SA2024148048

PATIENT

DRUGS (1)
  1. BELIMUMAB [Suspect]
     Active Substance: BELIMUMAB
     Indication: Systemic lupus erythematosus
     Dosage: 10 MG/KG, MO
     Dates: start: 20240507

REACTIONS (2)
  - Deep vein thrombosis [Unknown]
  - Influenza [Unknown]

NARRATIVE: CASE EVENT DATE: 20241104
